FAERS Safety Report 12076350 (Version 13)
Quarter: 2017Q4

REPORT INFORMATION
  Report Type: Report from Study
  Country: CA (occurrence: CA)
  Receive Date: 20160215
  Receipt Date: 20171211
  Transmission Date: 20180320
  Serious: Yes (Death, Hospitalization, Other)
  Sender: FDA-Public Use
  Company Number: CA-ROCHE-1288257

PATIENT
  Age: 60 Year
  Sex: Female

DRUGS (25)
  1. ALTACE [Concomitant]
     Active Substance: RAMIPRIL
  2. SENOKOT [Concomitant]
     Active Substance: SENNOSIDES
  3. PREDNISONE. [Concomitant]
     Active Substance: PREDNISONE
  4. ELAVIL [Concomitant]
     Active Substance: AMITRIPTYLINE HYDROCHLORIDE
  5. SULFASALAZINE. [Concomitant]
     Active Substance: SULFASALAZINE
  6. IMURAN [Concomitant]
     Active Substance: AZATHIOPRINE
  7. SYNTHROID [Concomitant]
     Active Substance: LEVOTHYROXINE SODIUM
  8. COUMADIN [Concomitant]
     Active Substance: WARFARIN SODIUM
  9. CYCLOBENZAPRINE. [Concomitant]
     Active Substance: CYCLOBENZAPRINE
  10. ACETAMINOPHEN. [Concomitant]
     Active Substance: ACETAMINOPHEN
     Indication: PREMEDICATION
     Route: 048
     Dates: start: 20070319, end: 20170717
  11. FOSAMAX [Concomitant]
     Active Substance: ALENDRONATE SODIUM
  12. COLACE [Concomitant]
     Active Substance: DOCUSATE SODIUM
  13. VITAMIN B12 [Concomitant]
     Active Substance: CYANOCOBALAMIN
  14. CEFADROXIL. [Concomitant]
     Active Substance: CEFADROXIL
     Dosage: X10 DAYS, X 3
     Route: 065
  15. METHYLPREDNISOLON [Concomitant]
     Active Substance: METHYLPREDNISOLONE
     Indication: PREMEDICATION
     Route: 042
     Dates: start: 20070319, end: 20170717
  16. PLAQUENIL [Concomitant]
     Active Substance: HYDROXYCHLOROQUINE SULFATE
  17. HYDROMORPH CONTIN [Concomitant]
     Active Substance: HYDROMORPHONE
  18. DIPHENHYDRAMINE HCL [Concomitant]
     Active Substance: DIPHENHYDRAMINE HYDROCHLORIDE
     Indication: PREMEDICATION
     Route: 048
     Dates: start: 20070319, end: 20170717
  19. RITUXAN [Suspect]
     Active Substance: RITUXIMAB
     Indication: RHEUMATOID ARTHRITIS
     Dosage: ON 25/FEB/2016, SHE RECEIVED LAST DOSE OF DRUG PRIOR TO EVENT.
     Route: 042
     Dates: start: 20070319, end: 20170717
  20. FOLIC ACID. [Concomitant]
     Active Substance: FOLIC ACID
  21. NEXIUM [Concomitant]
     Active Substance: ESOMEPRAZOLE MAGNESIUM
  22. CELEBREX [Concomitant]
     Active Substance: CELECOXIB
  23. NEURONTIN [Concomitant]
     Active Substance: GABAPENTIN
  24. DILAUDID [Concomitant]
     Active Substance: HYDROMORPHONE HYDROCHLORIDE
  25. VESICARE [Concomitant]
     Active Substance: SOLIFENACIN SUCCINATE

REACTIONS (24)
  - Infection [Fatal]
  - Spinal disorder [Unknown]
  - Arthritis infective [Not Recovered/Not Resolved]
  - Lower limb fracture [Unknown]
  - Psoriasis [Recovering/Resolving]
  - Oxygen saturation decreased [Unknown]
  - Infusion related reaction [Unknown]
  - Arthropathy [Unknown]
  - Loss of personal independence in daily activities [Recovering/Resolving]
  - Bronchitis [Not Recovered/Not Resolved]
  - Pulmonary fibrosis [Fatal]
  - Respiratory failure [Not Recovered/Not Resolved]
  - Pain [Not Recovered/Not Resolved]
  - Hypoaesthesia [Not Recovered/Not Resolved]
  - Fluid overload [Fatal]
  - Hypertension [Not Recovered/Not Resolved]
  - Sputum discoloured [Unknown]
  - Arthritis [Unknown]
  - Pulmonary fibrosis [Recovering/Resolving]
  - Dyspnoea [Recovering/Resolving]
  - Oropharyngeal pain [Unknown]
  - Psoriasis [Not Recovered/Not Resolved]
  - Back injury [Recovering/Resolving]
  - Cough [Not Recovered/Not Resolved]

NARRATIVE: CASE EVENT DATE: 20131009
